FAERS Safety Report 7402810-5 (Version None)
Quarter: 2011Q2

REPORT INFORMATION
  Report Type: 
  Country: None (occurrence: None)
  Receive Date: 20110408
  Receipt Date: 20070817
  Transmission Date: 20111010
  Serious: Yes (Other)
  Sender: FDA-Public Use
  Company Number: JP-MILLENNIUM PHARMACEUTICALS, INC.-2007-02373

PATIENT

DRUGS (25)
  1. ZANTAC [Concomitant]
     Indication: GASTRIC ULCER
     Dosage: 300 MG, QD
     Route: 048
     Dates: start: 20070403, end: 20070419
  2. GASTER [Concomitant]
     Indication: GASTRIC ULCER
     Dosage: 20 MG, QD
     Route: 048
     Dates: start: 20070419, end: 20090426
  3. GASTER [Concomitant]
     Indication: PROPHYLAXIS
     Dosage: 20 MG
     Route: 048
  4. DECADRON [Suspect]
     Indication: MULTIPLE MYELOMA
     Dosage: 20 MG, QD
     Route: 042
     Dates: start: 20070413, end: 20070511
  5. MEVALOTIN [Concomitant]
     Indication: HYPERLIPIDAEMIA
     Dosage: 10 MG, QD
     Route: 048
     Dates: start: 20070403, end: 20091123
  6. NAUZELIN [Concomitant]
     Indication: PROPHYLAXIS
  7. OXYCONTIN [Suspect]
     Indication: PRODUCT USED FOR UNKNOWN INDICATION
     Dosage: 10 MG, QD
     Route: 048
     Dates: start: 20070403, end: 20091123
  8. VELCADE [Suspect]
     Dosage: 1 MG, CYCLIC
     Route: 042
     Dates: start: 20090721, end: 20091111
  9. DECADRON [Suspect]
     Dosage: 8.00 MG, UNK
     Route: 042
     Dates: start: 20070717, end: 20070925
  10. AVISHOT [Concomitant]
     Indication: BENIGN PROSTATIC HYPERPLASIA
     Dosage: 50 MG, QD
     Route: 048
     Dates: start: 20070403, end: 20070504
  11. VOLTAREN [Concomitant]
     Indication: HYPOAESTHESIA
     Dosage: 25.00 G, UNK
     Route: 061
     Dates: start: 20070429, end: 20070429
  12. PURSENNID [Concomitant]
     Dosage: 36 MG, PRN
     Route: 048
     Dates: start: 20071015, end: 20090228
  13. RISPERDAL [Concomitant]
     Indication: DELIRIUM
     Dosage: 1 MG, PRN
     Route: 048
     Dates: start: 20071216, end: 20071216
  14. MEYLON [Concomitant]
     Indication: PROPHYLAXIS
     Dosage: 20 ML, QD
     Route: 042
     Dates: start: 20070413, end: 20070511
  15. ZYLORIC                            /00003301/ [Concomitant]
     Indication: PROPHYLAXIS
     Dosage: 300 MG, QD
     Route: 048
     Dates: start: 20070414, end: 20070416
  16. MEVALOTIN [Concomitant]
     Dosage: 5 MG, QD
     Route: 048
  17. LOXONIN [Concomitant]
     Indication: PROPHYLAXIS
     Dosage: 60 MG, PRN
     Route: 048
     Dates: start: 20070528, end: 20070701
  18. NAUZELIN [Concomitant]
     Indication: NAUSEA
     Dosage: 10 MG, PRN
     Route: 048
     Dates: start: 20070517, end: 20070701
  19. VELCADE [Suspect]
     Indication: MULTIPLE MYELOMA
     Dosage: 1.4 MG, CYCLIC
     Route: 042
     Dates: start: 20070413, end: 20090711
  20. DEXAMETHASONE [Suspect]
     Indication: MULTIPLE MYELOMA
     Dosage: 8 MG, QD
     Route: 042
     Dates: start: 20071016, end: 20080115
  21. LAXOBERON [Concomitant]
     Indication: CONSTIPATION
     Dosage: UNK, UNK
     Route: 048
     Dates: start: 20070429, end: 20070429
  22. ZOMETA [Concomitant]
     Dosage: 4 MG, QD
     Route: 042
     Dates: start: 20070622, end: 20070830
  23. LAXOBERON [Concomitant]
     Dosage: 10 ML, PRN
     Route: 048
     Dates: start: 20070528, end: 20090228
  24. FLIVAS [Concomitant]
     Indication: BENIGN PROSTATIC HYPERPLASIA
     Dosage: 25.00 MG, UNK
     Route: 048
     Dates: start: 20070502, end: 20091123
  25. PURSENNID [Concomitant]
     Indication: CONSTIPATION
     Dosage: 24 MG, PRN
     Route: 048
     Dates: start: 20070511, end: 20070701

REACTIONS (6)
  - PNEUMONIA [None]
  - HERPES ZOSTER [None]
  - GASTRIC CANCER [None]
  - THROMBOCYTOPENIA [None]
  - ANAEMIA [None]
  - STAPHYLOCOCCAL BACTERAEMIA [None]
